FAERS Safety Report 21289786 (Version 1)
Quarter: 2022Q3

REPORT INFORMATION
  Report Type: Spontaneous
  Country: US (occurrence: US)
  Receive Date: 20220902
  Receipt Date: 20220902
  Transmission Date: 20221026
  Serious: Yes (Other)
  Sender: FDA-Public Use
  Company Number: US-UCBSA-2022051557

PATIENT
  Age: 66 Year
  Sex: Female

DRUGS (3)
  1. CIMZIA [Suspect]
     Active Substance: CERTOLIZUMAB PEGOL
     Indication: Rheumatoid arthritis
     Dosage: 400 MILLIGRAM, EV 4 WEEKS
     Route: 058
     Dates: start: 20161018
  2. CIMZIA [Suspect]
     Active Substance: CERTOLIZUMAB PEGOL
     Indication: Colitis ulcerative
  3. CIMZIA [Suspect]
     Active Substance: CERTOLIZUMAB PEGOL
     Indication: Vitamin D deficiency

REACTIONS (2)
  - Colitis ulcerative [Unknown]
  - Product use in unapproved indication [Unknown]

NARRATIVE: CASE EVENT DATE: 20161018
